FAERS Safety Report 8433683-X (Version None)
Quarter: 2012Q2

REPORT INFORMATION
  Report Type: 
  Country: None (occurrence: None)
  Receive Date: 20120613
  Receipt Date: 20120605
  Transmission Date: 20120825
  Serious: No
  Sender: FDA-Public Use
  Company Number: US-ASTRAZENECA-2012SE37938

PATIENT
  Age: 38 Year
  Sex: Female

DRUGS (2)
  1. NEXIUM [Suspect]
     Route: 048
  2. ZANTAC [Suspect]

REACTIONS (3)
  - APHAGIA [None]
  - CHEST PAIN [None]
  - INTENTIONAL DRUG MISUSE [None]
